FAERS Safety Report 4280392-7 (Version None)
Quarter: 2004Q1

REPORT INFORMATION
  Report Type: 
  Country: None (occurrence: None)
  Receive Date: 20040126
  Receipt Date: 20031230
  Transmission Date: 20041129
  Serious: Yes (Hospitalization)
  Sender: FDA-Public Use
  Company Number: 165129

PATIENT
  Age: 48 Year
  Sex: Female
  Weight: 65 kg

DRUGS (5)
  1. AVONEX [Suspect]
     Indication: MULTIPLE SCLEROSIS
     Dosage: 30 MCG QW IM
     Route: 030
     Dates: start: 20010816, end: 20020830
  2. AVONEX [Suspect]
     Indication: MULTIPLE SCLEROSIS
     Dosage: 30 MCG QW IM
     Route: 030
     Dates: start: 20031001
  3. ACETAMINOPHEN [Concomitant]
  4. LIORESAL [Concomitant]
  5. LEVOTHYROX [Concomitant]

REACTIONS (6)
  - ASTHENIA [None]
  - COLON CANCER METASTATIC [None]
  - INFLUENZA LIKE ILLNESS [None]
  - MYALGIA [None]
  - PYREXIA [None]
  - WEIGHT DECREASED [None]
